FAERS Safety Report 9339517 (Version 1)
Quarter: 2013Q2

REPORT INFORMATION
  Report Type: Spontaneous
  Country: US (occurrence: None)
  Receive Date: 20130607
  Receipt Date: 20130607
  Transmission Date: 20140414
  Serious: Yes (Hospitalization)
  Sender: FDA-Public Use
  Company Number: None

PATIENT
  Age: 17 Day
  Sex: Female
  Weight: 23.13 kg

DRUGS (2)
  1. ALLOPURINOL [Suspect]
     Dosage: 1 FOR PAIN
  2. COLCHICINE [Suspect]
     Dosage: 1 FOR PAIN

REACTIONS (2)
  - Stevens-Johnson syndrome [None]
  - Toxic epidermal necrolysis [None]
